FAERS Safety Report 8884774 (Version 2)
Quarter: 2012Q4

REPORT INFORMATION
  Report Type: 
  Country: US (occurrence: US)
  Receive Date: 20121102
  Receipt Date: 20121112
  Transmission Date: 20130627
  Serious: Yes (Hospitalization)
  Sender: FDA-Public Use
  Company Number: US-JNJFOC-20121011373

PATIENT
  Age: 39 Year
  Sex: Male
  Weight: 88.45 kg

DRUGS (4)
  1. SUDAFED 24 HOUR [Suspect]
     Route: 048
  2. SUDAFED 24 HOUR [Suspect]
     Indication: HYPERSENSITIVITY
     Route: 048
     Dates: start: 20110108, end: 20110624
  3. SUDAFED 12 HOUR [Suspect]
     Route: 065
  4. SUDAFED 12 HOUR [Suspect]
     Indication: MULTIPLE ALLERGIES
     Route: 065

REACTIONS (1)
  - Ulcer haemorrhage [Recovered/Resolved]
